FAERS Safety Report 17687340 (Version 1)
Quarter: 2020Q2

REPORT INFORMATION
  Report Type: Spontaneous
  Country: US (occurrence: US)
  Receive Date: 20200421
  Receipt Date: 20200421
  Transmission Date: 20200714
  Serious: Yes (Death, Other)
  Sender: FDA-Public Use
  Company Number: US-SA-2020SA102408

PATIENT
  Age: 56 Year
  Sex: Female

DRUGS (2)
  1. PROPULSID [Concomitant]
     Active Substance: CISAPRIDE
     Dosage: UNK UNK, BID
  2. ZANTAC 75 [Suspect]
     Active Substance: RANITIDINE HYDROCHLORIDE
     Indication: ABDOMINAL PAIN
     Dosage: UNK UNK, BID
     Route: 065
     Dates: start: 19940815

REACTIONS (5)
  - Abdominal pain [Unknown]
  - Blood urine present [Unknown]
  - Renal cell carcinoma [Fatal]
  - Back pain [Unknown]
  - Pruritus [Unknown]
